FAERS Safety Report 6570022-3 (Version None)
Quarter: 2010Q1

REPORT INFORMATION
  Report Type: 
  Country: None (occurrence: None)
  Receive Date: 20100204
  Receipt Date: 20090316
  Transmission Date: 20100710
  Serious: Yes (Other)
  Sender: FDA-Public Use
  Company Number: US-BAYER-200915703NA

PATIENT
  Age: 51 Year
  Sex: Female
  Weight: 59 kg

DRUGS (4)
  1. ULTRAVIST 370 [Suspect]
     Indication: COMPUTERISED TOMOGRAM ABDOMEN
     Dosage: TOTAL DAILY DOSE: 100 ML  UNIT DOSE: 100 ML
     Route: 042
     Dates: start: 20090310, end: 20090310
  2. KLONOPIN [Concomitant]
  3. ALBUTEROL [Concomitant]
     Route: 055
  4. READI-CAT [Concomitant]
     Route: 048
     Dates: start: 20090310, end: 20090310

REACTIONS (2)
  - EYE SWELLING [None]
  - THROAT TIGHTNESS [None]
